FAERS Safety Report 8170380-2 (Version None)
Quarter: 2012Q1

REPORT INFORMATION
  Report Type: 
  Country: None (occurrence: None)
  Receive Date: 20120228
  Receipt Date: 20120214
  Transmission Date: 20120608
  Serious: Yes (Other)
  Sender: FDA-Public Use
  Company Number: US-ELI_LILLY_AND_COMPANY-US201201006729

PATIENT
  Sex: Female

DRUGS (2)
  1. VENLAFAXINE [Concomitant]
     Dosage: 225 MG, UNK
  2. STRATTERA [Suspect]
     Dosage: 98 MG, UNK
     Dates: start: 20100101

REACTIONS (1)
  - MYOCLONUS [None]
